FAERS Safety Report 9120830 (Version 1)
Quarter: 2013Q1

REPORT INFORMATION
  Report Type: Spontaneous
  Country: US (occurrence: US)
  Receive Date: 20130226
  Receipt Date: 20130226
  Transmission Date: 20140127
  Serious: No
  Sender: FDA-Public Use
  Company Number: US-PFIZER INC-2013067274

PATIENT
  Age: 57 Year
  Sex: Female
  Weight: 70.3 kg

DRUGS (12)
  1. PRISTIQ [Suspect]
     Indication: DEPRESSION
     Dosage: 50 MG, UNK
     Route: 048
     Dates: start: 2010
  2. PRISTIQ [Suspect]
     Indication: AFFECTIVE DISORDER
     Dosage: 100 MG, 1X/DAY
     Route: 048
  3. BACLOFEN [Concomitant]
     Indication: FIBROMYALGIA
     Dosage: UNK
  4. TRAMADOL [Concomitant]
     Indication: FIBROMYALGIA
     Dosage: UNK
  5. KLONOPIN [Concomitant]
     Indication: ANXIETY
     Dosage: UNK
  6. ESTROGEN [Concomitant]
     Indication: MENOPAUSAL SYMPTOMS
     Dosage: UNK
  7. ESGIC-PLUS [Concomitant]
     Indication: MIGRAINE
     Dosage: UNK
  8. SEROQUEL [Concomitant]
     Indication: PSYCHOTIC DISORDER
     Dosage: UNK
  9. DEPAKOTE [Concomitant]
     Dosage: UNK
  10. TOPAMAX [Concomitant]
     Dosage: UNK
  11. PROVIGIL [Concomitant]
     Dosage: UNK
  12. REQUIP [Concomitant]
     Dosage: UNK

REACTIONS (4)
  - Speech disorder [Not Recovered/Not Resolved]
  - Dry mouth [Not Recovered/Not Resolved]
  - Tongue dry [Not Recovered/Not Resolved]
  - Dry throat [Not Recovered/Not Resolved]
